FAERS Safety Report 15099504 (Version 1)
Quarter: 2018Q3

REPORT INFORMATION
  Report Type: Spontaneous
  Country: US (occurrence: US)
  Receive Date: 20180702
  Receipt Date: 20180702
  Transmission Date: 20181010
  Serious: No
  Sender: FDA-Public Use
  Company Number: US-ACTELION-A-US2018-174416

PATIENT
  Age: 27 Year
  Sex: Female

DRUGS (7)
  1. MULTIVITAMIN [Concomitant]
     Active Substance: VITAMINS
     Dosage: 1 TABLET, QD
     Route: 048
     Dates: start: 20180522
  2. ALPHA LIPOIC ACID [Concomitant]
     Active Substance: .ALPHA.-LIPOIC ACID
     Dosage: 1 TABLET, QD
     Route: 048
  3. ALPHA LIPOIC ACID [Concomitant]
     Active Substance: .ALPHA.-LIPOIC ACID
     Dosage: 1 CAPSULE, QD
     Route: 048
     Dates: start: 20180522
  4. VITAMIN D [Concomitant]
     Active Substance: CHOLECALCIFEROL
     Dosage: 1 CAPSULE, QD
     Route: 048
  5. ZAVESCA [Suspect]
     Active Substance: MIGLUSTAT
     Indication: PRODUCT USED FOR UNKNOWN INDICATION
     Dosage: 200 MG, TID
     Route: 048
     Dates: start: 201805
  6. VITAMIN E [Concomitant]
     Active Substance: .ALPHA.-TOCOPHEROL
     Dosage: 1 CAPSULE, QD
     Route: 048
     Dates: start: 20180522
  7. VITAMIN C [Concomitant]
     Active Substance: ASCORBIC ACID
     Dosage: 2 TABLETS, QD
     Route: 048
     Dates: start: 20180522

REACTIONS (2)
  - Psychotic disorder [Unknown]
  - Hallucination, auditory [Unknown]

NARRATIVE: CASE EVENT DATE: 20180616
